FAERS Safety Report 4385065-8 (Version None)
Quarter: 2004Q2

REPORT INFORMATION
  Report Type: 
  Country: None (occurrence: None)
  Receive Date: 20040624
  Receipt Date: 20040624
  Transmission Date: 20050107
  Serious: No
  Sender: FDA-Public Use
  Company Number: None

PATIENT
  Age: 44 Year
  Sex: Female
  Weight: 60.3284 kg

DRUGS (2)
  1. NORTRIPTYLINE HCL [Suspect]
     Indication: HEADACHE
     Dosage: ONE QHS PO
     Route: 048
     Dates: start: 20030414
  2. NORTRIPTYLINE HCL [Suspect]
     Indication: HEADACHE
     Dosage: ONE QHS PO
     Route: 048
     Dates: start: 19990103

REACTIONS (5)
  - CONDITION AGGRAVATED [None]
  - DRUG INEFFECTIVE [None]
  - HEADACHE [None]
  - PHARMACEUTICAL PRODUCT COMPLAINT [None]
  - PHOBIA [None]
